FAERS Safety Report 10273111 (Version 3)
Quarter: 2014Q3

REPORT INFORMATION
  Report Type: Report from Study
  Country: DE (occurrence: DE)
  Receive Date: 20140702
  Receipt Date: 20140725
  Transmission Date: 20150326
  Serious: Yes (Hospitalization)
  Sender: FDA-Public Use
  Company Number: DE-BAYER-2013-150723

PATIENT
  Sex: Male
  Weight: 19 kg

DRUGS (9)
  1. RADIUM-223 DICHLORIDE [Suspect]
     Active Substance: RADIUM RA-223 DICHLORIDE
     Indication: PROSTATE CANCER METASTATIC
     Dosage: 8 KBQ, Q1MON
     Route: 042
     Dates: start: 20131108, end: 20131108
  2. ZOLADEX [Concomitant]
     Active Substance: GOSERELIN ACETATE
     Dosage: 1 APPLICATION EVERY THREE MONTHS
     Route: 058
     Dates: start: 200808
  3. SANDOCAL [CALCIUM CARBONATE,COLECALCIFEROL] [Concomitant]
     Dosage: 1 TABLET DAILY
     Route: 048
  4. RADIUM-223 DICHLORIDE [Suspect]
     Active Substance: RADIUM RA-223 DICHLORIDE
     Indication: PROSTATE CANCER METASTATIC
     Dosage: 6.75 KBQ, Q1MON
     Route: 042
     Dates: start: 20131008, end: 20131008
  5. ABIRATERONE [Concomitant]
     Active Substance: ABIRATERONE
     Dosage: 1000 MG, QD
     Route: 048
     Dates: start: 201201
  6. DENOSUMAB [Concomitant]
     Active Substance: DENOSUMAB
     Dosage: 120 MG EVERY 4 WEEKS
     Route: 058
     Dates: start: 201204
  7. PREDNISONE. [Concomitant]
     Active Substance: PREDNISONE
     Dosage: 10 MG, QD
     Route: 048
     Dates: start: 201201
  8. RADIUM-223 DICHLORIDE [Suspect]
     Active Substance: RADIUM RA-223 DICHLORIDE
     Indication: PROSTATE CANCER METASTATIC
     Dosage: 4.6 KBQ, Q1MON
     Route: 042
     Dates: start: 20130813, end: 20130813
  9. RADIUM-223 DICHLORIDE [Suspect]
     Active Substance: RADIUM RA-223 DICHLORIDE
     Indication: METASTASES TO BONE
     Dosage: 4.6 KBQ, Q1MON
     Route: 042
     Dates: start: 20130910, end: 20130910

REACTIONS (1)
  - Dyspnoea [Recovered/Resolved with Sequelae]

NARRATIVE: CASE EVENT DATE: 20131104
